FAERS Safety Report 7221655-2 (Version None)
Quarter: 2011Q1

REPORT INFORMATION
  Report Type: 
  Country: None (occurrence: None)
  Receive Date: 20110112
  Receipt Date: 20110105
  Transmission Date: 20110831
  Serious: Yes (Hospitalization)
  Sender: FDA-Public Use
  Company Number: DE-ROCHE-746734

PATIENT
  Sex: Male
  Weight: 70 kg

DRUGS (3)
  1. BENZODIAZEPINE [Suspect]
     Route: 065
  2. SUBOXONE [Suspect]
     Route: 048
     Dates: start: 20100625
  3. PEGINTERFERON ALFA-2A [Suspect]
     Route: 058
     Dates: start: 20100922

REACTIONS (1)
  - TOXICITY TO VARIOUS AGENTS [None]
